FAERS Safety Report 8955888 (Version 1)
Quarter: 2012Q4

REPORT INFORMATION
  Report Type: 
  Country: GB (occurrence: GB)
  Receive Date: 20121210
  Receipt Date: 20121210
  Transmission Date: 20130627
  Serious: Yes (Hospitalization, Other)
  Sender: FDA-Public Use
  Company Number: GB-PFIZER INC-2012306225

PATIENT
  Age: 92 Year
  Sex: Female

DRUGS (10)
  1. PIPERACILLIN, TAZOBACTAM [Suspect]
     Indication: PNEUMONIA
     Dosage: 4.5 g, 3x/day
     Route: 042
     Dates: start: 20121017, end: 20121024
  2. CITALOPRAM [Concomitant]
     Indication: DEPRESSION
     Dosage: long term
     Route: 048
  3. OMEPRAZOLE [Concomitant]
     Indication: GASTROESOPHAGEAL REFLUX DISEASE
     Dosage: long term
     Route: 048
  4. ALENDRONIC ACID [Concomitant]
     Indication: OSTEOPOROSIS
     Dosage: long term
     Route: 048
  5. DOXAZOSIN [Concomitant]
     Indication: HYPERTENSION
     Dosage: long term
     Route: 048
  6. AMLODIPINE [Concomitant]
     Indication: HYPERTENSION
     Dosage: long term
     Route: 048
  7. ACETYLSALICYLIC ACID [Concomitant]
     Indication: HYPERTENSION
     Dosage: long term
     Route: 048
  8. BETAHISTINE [Concomitant]
     Dosage: 16 mg, 3x/day
     Route: 048
  9. CO-CODAMOL [Concomitant]
     Indication: PAIN RELIEF
     Dosage: 30/500mg
  10. PARACETAMOL [Concomitant]
     Indication: PAIN RELIEF

REACTIONS (3)
  - Rash macular [Not Recovered/Not Resolved]
  - Pruritus [Not Recovered/Not Resolved]
  - Discomfort [Not Recovered/Not Resolved]
